FAERS Safety Report 15786412 (Version 1)
Quarter: 2019Q1

REPORT INFORMATION
  Report Type: Spontaneous
  Country: US (occurrence: US)
  Receive Date: 20190103
  Receipt Date: 20190103
  Transmission Date: 20190417
  Serious: Yes (Hospitalization, Disabling)
  Sender: FDA-Public Use
  Company Number: None

PATIENT
  Age: 14 Year
  Sex: Female
  Weight: 74.25 kg

DRUGS (4)
  1. HYDROXYZINE PAMOATE. [Concomitant]
     Active Substance: HYDROXYZINE PAMOATE
  2. ARIPIPRAZOLE (GENERIC FOR ABILIFY) [Suspect]
     Active Substance: ARIPIPRAZOLE
     Indication: AFFECTIVE DISORDER
     Dosage: ?          QUANTITY:1 CAPSULE(S);?
     Route: 048
  3. LEXAPRO [Concomitant]
     Active Substance: ESCITALOPRAM OXALATE
  4. ARIPIPRAZOLE (GENERIC FOR ABILIFY) [Suspect]
     Active Substance: ARIPIPRAZOLE
     Indication: MENTAL DISORDER
     Dosage: ?          QUANTITY:1 CAPSULE(S);?
     Route: 048

REACTIONS (4)
  - Suicidal ideation [None]
  - Condition aggravated [None]
  - Unevaluable event [None]
  - Type 2 diabetes mellitus [None]

NARRATIVE: CASE EVENT DATE: 20190102
